FAERS Safety Report 10098950 (Version 1)
Quarter: 2014Q2

REPORT INFORMATION
  Report Type: Spontaneous
  Country: US (occurrence: US)
  Receive Date: 20140423
  Receipt Date: 20140423
  Transmission Date: 20141212
  Serious: No
  Sender: FDA-Public Use
  Company Number: US-009507513-1403USA014065

PATIENT
  Age: 34 Year
  Sex: Female

DRUGS (2)
  1. PEGINTRON [Suspect]
     Indication: HEPATITIS C
     Dosage: 0.5 ML, QW
     Dates: start: 201403
  2. REBETOL [Suspect]
     Indication: HEPATITIS C
     Dosage: UNK

REACTIONS (7)
  - Somnolence [Unknown]
  - Product quality issue [Unknown]
  - Pyrexia [Unknown]
  - Depressed mood [Unknown]
  - Alopecia [Unknown]
  - Abdominal discomfort [Unknown]
  - Weight decreased [Unknown]
